FAERS Safety Report 6788871-5 (Version None)
Quarter: 2010Q2

REPORT INFORMATION
  Report Type: 
  Country: None (occurrence: None)
  Receive Date: 20100621
  Receipt Date: 20100608
  Transmission Date: 20101027
  Serious: No
  Sender: FDA-Public Use
  Company Number: 2010SP032801

PATIENT
  Sex: Female

DRUGS (1)
  1. COPPERTONE OIL FREE FACES SPF 30 [Suspect]
     Indication: DRUG USE FOR UNKNOWN INDICATION
     Dosage: ONCE, TOP
     Route: 061
     Dates: start: 20100607

REACTIONS (8)
  - DIZZINESS [None]
  - DYSPNOEA [None]
  - EYE IRRITATION [None]
  - PHARYNGEAL OEDEMA [None]
  - SINUS DISORDER [None]
  - SWELLING [None]
  - THROAT TIGHTNESS [None]
  - VISION BLURRED [None]
